FAERS Safety Report 8462041-7 (Version None)
Quarter: 2012Q2

REPORT INFORMATION
  Report Type: 
  Country: None (occurrence: None)
  Receive Date: 20120625
  Receipt Date: 20120620
  Transmission Date: 20120825
  Serious: Yes (Hospitalization)
  Sender: FDA-Public Use
  Company Number: FI-PFIZER INC-2012148231

PATIENT
  Age: 84 Year
  Sex: Male

DRUGS (8)
  1. SYMBICORT [Concomitant]
     Dosage: 1 INHALATION TWICE DAILY
     Route: 055
  2. ENALAPRIL MALEATE [Concomitant]
     Dosage: 10 MG, 1X/DAY
     Route: 048
  3. DONEPEZIL HYDROCHLORIDE [Concomitant]
     Dosage: 10 MG, 1X/DAY
     Route: 048
  4. ESTRACYT [Suspect]
     Indication: PROSTATE CANCER
     Dosage: 2X2
     Route: 048
     Dates: start: 20120530, end: 20120611
  5. NORVASC [Concomitant]
     Dosage: 5 MG, 1X/DAY
     Route: 048
  6. PRIMASPAN [Concomitant]
     Dosage: 100 MG, 1X/DAY
     Route: 048
  7. MEMANTINE HYDROCHLORIDE [Concomitant]
     Dosage: 10 MG, 1X/DAY
     Route: 048
  8. SPIRIVA [Concomitant]
     Dosage: 18 UG, 1X/DAY
     Route: 055

REACTIONS (4)
  - LARYNGEAL OEDEMA [None]
  - SWOLLEN TONGUE [None]
  - LOCAL SWELLING [None]
  - DYSPNOEA [None]
